FAERS Safety Report 6335219-6 (Version None)
Quarter: 2009Q3

REPORT INFORMATION
  Report Type: 
  Country: None (occurrence: None)
  Receive Date: 20090827
  Receipt Date: 20090813
  Transmission Date: 20100115
  Serious: Yes (Hospitalization, Other)
  Sender: FDA-Public Use
  Company Number: AUR-APL-2009-00419

PATIENT
  Age: 73 Year
  Sex: Male

DRUGS (1)
  1. AMLODIPINE [Suspect]
     Indication: HYPERTENSION
     Dosage: 10MG - DAILY

REACTIONS (8)
  - ADRENAL ADENOMA [None]
  - ADRENAL MASS [None]
  - HYPERADRENALISM [None]
  - HYPERTENSION [None]
  - HYPOKALAEMIA [None]
  - METABOLIC ALKALOSIS [None]
  - PRIMARY HYPERALDOSTERONISM [None]
  - RHABDOMYOLYSIS [None]
